FAERS Safety Report 21474814 (Version 1)
Quarter: 2022Q4

REPORT INFORMATION
  Report Type: Spontaneous
  Country: US (occurrence: US)
  Receive Date: 20221018
  Receipt Date: 20221018
  Transmission Date: 20230113
  Serious: No
  Sender: FDA-Public Use
  Company Number: US-SANOFI-01320833

PATIENT
  Sex: Female

DRUGS (1)
  1. LANTUS SOLOSTAR [Suspect]
     Active Substance: INSULIN GLARGINE
     Indication: Type 2 diabetes mellitus
     Dosage: 21 IU, BID, 21 UNITS IN THE MORNING AND 21 UNITS IN THE EVENING
     Dates: start: 2002

REACTIONS (2)
  - Inappropriate schedule of product administration [Unknown]
  - Product dispensing issue [Unknown]
